FAERS Safety Report 19207253 (Version 1)
Quarter: 2021Q2

REPORT INFORMATION
  Report Type: Spontaneous
  Country: US (occurrence: US)
  Receive Date: 20210503
  Receipt Date: 20210503
  Transmission Date: 20210717
  Serious: Yes (Other)
  Sender: FDA-Public Use
  Company Number: US-ROCHE-2822716

PATIENT
  Sex: Female

DRUGS (3)
  1. RINVOQ [Concomitant]
     Active Substance: UPADACITINIB
  2. AMOXICILLIN. [Concomitant]
     Active Substance: AMOXICILLIN
  3. ACTEMRA [Suspect]
     Active Substance: TOCILIZUMAB
     Indication: RHEUMATOID ARTHRITIS
     Dosage: 162MG/0.9ML MG
     Route: 058
     Dates: start: 20210204, end: 20210428

REACTIONS (3)
  - Neoplasm malignant [Unknown]
  - Ill-defined disorder [Unknown]
  - Pain [Unknown]
